FAERS Safety Report 6863333-5 (Version None)
Quarter: 2010Q3

REPORT INFORMATION
  Report Type: 
  Country: None (occurrence: None)
  Receive Date: 20100721
  Receipt Date: 20100712
  Transmission Date: 20110219
  Serious: Yes (Hospitalization, Other)
  Sender: FDA-Public Use
  Company Number: GB-JNJFOC-20100703744

PATIENT
  Age: 14 Year
  Sex: Female

DRUGS (6)
  1. TOPAMAX [Suspect]
     Indication: PETIT MAL EPILEPSY
     Route: 048
  2. TOPAMAX [Suspect]
     Route: 048
  3. TOPAMAX [Suspect]
     Dosage: 25MG IN MORNING AND EVENING
     Route: 048
  4. TOPAMAX [Suspect]
     Route: 048
  5. TOPIRAMATE [Suspect]
     Indication: PRODUCT USED FOR UNKNOWN INDICATION
     Route: 048
  6. LAMOTRIGINE [Suspect]
     Indication: EPILEPSY
     Route: 048

REACTIONS (4)
  - ABASIA [None]
  - CONVULSION [None]
  - DIZZINESS [None]
  - DYSARTHRIA [None]
